FAERS Safety Report 22095446 (Version 9)
Quarter: 2024Q2

REPORT INFORMATION
  Report Type: Spontaneous
  Country: US (occurrence: US)
  Receive Date: 20230314
  Receipt Date: 20240522
  Transmission Date: 20240716
  Serious: No
  Sender: FDA-Public Use
  Company Number: US-PFIZER INC-PV202300046781

PATIENT
  Age: 47 Year
  Sex: Male

DRUGS (3)
  1. INLYTA [Suspect]
     Active Substance: AXITINIB
     Indication: Renal cancer
     Dosage: TAKE 2 TABLETS (2MG TOTAL) BY MOUTH 2X DAILY TAKE THIS ALONG W/ 5MG PO BID; TOTAL DOSE 7MG PO BID
     Route: 048
     Dates: start: 20230307
  2. INLYTA [Suspect]
     Active Substance: AXITINIB
     Dosage: 7 MG, 2X/DAY (5MG EVERY 12 HRS; 1 MG TAKE 2 TABS EVERY 12 HRS)
     Route: 048
  3. INLYTA [Suspect]
     Active Substance: AXITINIB
     Dosage: TAKE 2 TABLETS (2 MG TOTAL) BY MOUTH 2X DAILY TAKE THIS ALONG W/ 5MG PO BID;TOTAL DOSE 7MG PO BID
     Route: 048

REACTIONS (1)
  - Headache [Recovering/Resolving]

NARRATIVE: CASE EVENT DATE: 20230307
